FAERS Safety Report 13462445 (Version 1)
Quarter: 2017Q2

REPORT INFORMATION
  Report Type: Spontaneous
  Country: GB (occurrence: GB)
  Receive Date: 20170420
  Receipt Date: 20170420
  Transmission Date: 20170830
  Serious: Yes (Other)
  Sender: FDA-Public Use
  Company Number: GB-PFIZER INC-2017167866

PATIENT
  Age: 51 Year
  Sex: Male
  Weight: 101 kg

DRUGS (5)
  1. BETAMETHASONE VALERATE. [Concomitant]
     Active Substance: BETAMETHASONE VALERATE
     Dosage: 1 DF, 2X/DAY
     Dates: start: 20170113, end: 20170127
  2. ATORVASTATIN CALCIUM. [Suspect]
     Active Substance: ATORVASTATIN CALCIUM
     Dosage: UNK
     Dates: start: 20170403
  3. METFORMIN [Concomitant]
     Active Substance: METFORMIN HYDROCHLORIDE
     Dosage: 1 DF, 2X/DAY (ONE WITH BREAKFAST ONE WITH EVENING MEAL)
     Dates: start: 20160629
  4. ATENOLOL. [Concomitant]
     Active Substance: ATENOLOL
     Dosage: 1 DF, 1X/DAY (EACH MORNING)
     Dates: start: 20160804
  5. LISINOPRIL. [Concomitant]
     Active Substance: LISINOPRIL
     Dosage: 1 DF, 1X/DAY
     Dates: start: 20160629

REACTIONS (2)
  - Bradycardia [Recovered/Resolved]
  - Nausea [Recovered/Resolved]

NARRATIVE: CASE EVENT DATE: 20170403
